FAERS Safety Report 10076986 (Version 1)
Quarter: 2014Q2

REPORT INFORMATION
  Report Type: Spontaneous
  Country: GB (occurrence: GB)
  Receive Date: 20140414
  Receipt Date: 20140414
  Transmission Date: 20141212
  Serious: Yes (Hospitalization, Other)
  Sender: FDA-Public Use
  Company Number: GB-WATSON-2014-07064

PATIENT
  Age: 34 Year
  Sex: Female
  Weight: 63 kg

DRUGS (3)
  1. MIRTAZAPINE (UNKNOWN) [Suspect]
     Indication: DEPRESSION
     Dosage: 15 MG, QPM
     Route: 048
     Dates: start: 20140305, end: 20140310
  2. DIAZEPAM [Concomitant]
     Indication: ANXIETY
     Dosage: 5 MG, BID; PRN
     Route: 048
     Dates: start: 20140305
  3. DIAZEPAM [Concomitant]
     Indication: HYPNOTHERAPY

REACTIONS (7)
  - Arthralgia [Recovering/Resolving]
  - White blood cell count decreased [Recovering/Resolving]
  - Muscle swelling [Unknown]
  - Joint warmth [Unknown]
  - Mass [Unknown]
  - Hypokinesia [Unknown]
  - Diarrhoea [Unknown]
